FAERS Safety Report 24622227 (Version 3)
Quarter: 2024Q4

REPORT INFORMATION
  Report Type: Report from Study
  Country: US (occurrence: US)
  Receive Date: 20241114
  Receipt Date: 20241127
  Transmission Date: 20250114
  Serious: Yes (Other)
  Sender: ABBVIE
  Company Number: US-ABBVIE-5995324

PATIENT
  Age: 47 Year
  Sex: Female
  Weight: 82.553 kg

DRUGS (7)
  1. BOTOX COSMETIC [Suspect]
     Active Substance: ONABOTULINUMTOXINA
     Indication: Skin wrinkling
     Dosage: TIME INTERVAL: AS NECESSARY: TOTAL DOSE: 50 UNIT
     Route: 030
     Dates: start: 20230921, end: 20230921
  2. BOTOX COSMETIC [Suspect]
     Active Substance: ONABOTULINUMTOXINA
     Indication: Skin wrinkling
     Dosage: TIME INTERVAL: AS NECESSARY: TOTAL DOSE: 50 UNIT
     Route: 030
     Dates: start: 20230921, end: 20230921
  3. BOTOX COSMETIC [Suspect]
     Active Substance: ONABOTULINUMTOXINA
     Indication: Skin wrinkling
     Dosage: TIME INTERVAL: AS NECESSARY: TOTAL DOSE: 50 UNIT
     Route: 030
     Dates: start: 20230921, end: 20230921
  4. SUMATRIPTAN [Concomitant]
     Active Substance: SUMATRIPTAN
     Indication: Hypertension
  5. ROSUVASTATIN [Concomitant]
     Active Substance: ROSUVASTATIN
     Indication: Blood cholesterol increased
     Route: 065
  6. VITAMIN D [Concomitant]
     Active Substance: VITAMIN D NOS
     Indication: Product used for unknown indication
     Dosage: 50000 UNIT
     Route: 065
  7. LEVOTHYROXINE [Concomitant]
     Active Substance: LEVOTHYROXINE
     Indication: Hypothyroidism
     Route: 065

REACTIONS (16)
  - Cerebrovascular accident [Recovered/Resolved]
  - Rash macular [Recovered/Resolved]
  - Hypertension [Not Recovered/Not Resolved]
  - Dizziness [Recovered/Resolved]
  - Vision blurred [Not Recovered/Not Resolved]
  - Chills [Recovered/Resolved]
  - Transient ischaemic attack [Unknown]
  - Drug ineffective [Not Recovered/Not Resolved]
  - Mobility decreased [Recovering/Resolving]
  - Dyspnoea [Unknown]
  - Chills [Unknown]
  - Migraine [Unknown]
  - Insomnia [Unknown]
  - Lethargy [Unknown]
  - Nerve injury [Unknown]
  - Asthenia [Unknown]

NARRATIVE: CASE EVENT DATE: 20230212
